FAERS Safety Report 4514543-3 (Version None)
Quarter: 2004Q4

REPORT INFORMATION
  Report Type: 
  Country: None (occurrence: None)
  Receive Date: 20041126
  Receipt Date: 20041117
  Transmission Date: 20050328
  Serious: Yes (Hospitalization)
  Sender: FDA-Public Use
  Company Number: STA-AE-04-MTX-578

PATIENT
  Age: 69 Year
  Sex: Female

DRUGS (4)
  1. METHOTREXATE [Suspect]
     Indication: RHEUMATOID ARTHRITIS
     Dosage: 17.5 MG 1X PER 1 WK, ORAL
     Route: 048
     Dates: start: 19990701
  2. REMICADE [Suspect]
     Indication: RHEUMATOID ARTHRITIS
     Dosage: INTRAVENOUS
     Route: 042
     Dates: start: 20030625, end: 20040624
  3. OMEPRAZOLE [Concomitant]
  4. PREDNISONE [Concomitant]

REACTIONS (2)
  - RENAL ONCOCYTOMA [None]
  - URINARY TRACT INFECTION [None]
